FAERS Safety Report 7288246-9 (Version None)
Quarter: 2011Q1

REPORT INFORMATION
  Report Type: 
  Country: None (occurrence: None)
  Receive Date: 20110211
  Receipt Date: 20110202
  Transmission Date: 20110831
  Serious: Yes (Hospitalization, Other)
  Sender: FDA-Public Use
  Company Number: US-ROCHE-737915

PATIENT
  Sex: Female

DRUGS (16)
  1. ALBUTEROL [Concomitant]
     Dosage: DOSE: 2 PUFFS
  2. TOPAMAX [Concomitant]
  3. ZOCOR [Concomitant]
  4. SIMVASTATIN [Concomitant]
  5. DESLORATADINE [Concomitant]
  6. ZOLOFT [Concomitant]
  7. MORPHINE [Concomitant]
  8. KENALOG [Concomitant]
     Dates: start: 20100226
  9. BONIVA [Suspect]
     Indication: OSTEOPOROSIS
     Route: 048
     Dates: start: 20090601, end: 20100601
  10. AMBIEN [Concomitant]
     Dosage: FREQ: QHS
  11. ZANAFLEX [Concomitant]
  12. XANAX [Concomitant]
  13. PREMARIN [Concomitant]
  14. ATENOLOL [Concomitant]
  15. OXYCODONE HCL [Concomitant]
  16. LYRICA [Concomitant]

REACTIONS (2)
  - SYNCOPE [None]
  - LOSS OF CONSCIOUSNESS [None]
